FAERS Safety Report 7819456-7 (Version None)
Quarter: 2011Q4

REPORT INFORMATION
  Report Type: 
  Country: None (occurrence: None)
  Receive Date: 20111018
  Receipt Date: 20101007
  Transmission Date: 20120403
  Serious: No
  Sender: FDA-Public Use
  Company Number: US-ASTRAZENECA-2010SE47566

PATIENT
  Age: 7 Year
  Sex: Male

DRUGS (3)
  1. ALBUTEROL [Concomitant]
  2. SYMBICORT [Suspect]
     Indication: ASTHMA
     Dosage: 160 MCG BID
     Route: 055
     Dates: start: 20080101
  3. PULMICORT [Concomitant]
     Route: 055

REACTIONS (3)
  - RALES [None]
  - ASTHMA [None]
  - DRUG INEFFECTIVE [None]
